FAERS Safety Report 7710955-5 (Version None)
Quarter: 2011Q3

REPORT INFORMATION
  Report Type: 
  Country: None (occurrence: None)
  Receive Date: 20110825
  Receipt Date: 20110819
  Transmission Date: 20111222
  Serious: Yes (Death, Hospitalization, Other)
  Sender: FDA-Public Use
  Company Number: JP-MERCK-1106USA02407

PATIENT
  Age: 70 Year
  Sex: Female

DRUGS (8)
  1. PLAVIX [Concomitant]
     Indication: THROMBOSIS PROPHYLAXIS
     Route: 048
  2. MICARDIS [Concomitant]
     Indication: HYPERTENSION
     Route: 048
  3. NAUZELIN [Concomitant]
     Indication: GASTRITIS
     Route: 048
  4. FEBUXOSTAT [Suspect]
     Indication: HYPERURICAEMIA
     Route: 048
     Dates: start: 20110606
  5. CRESTOR [Concomitant]
     Indication: HYPERCHOLESTEROLAEMIA
     Route: 048
  6. MIGLITOL [Concomitant]
     Indication: DIABETES MELLITUS
     Route: 048
  7. LEVOTHYROXINE SODIUM [Concomitant]
     Indication: HYPOTHYROIDISM
     Route: 048
  8. FOSAMAX [Suspect]
     Indication: OSTEOPOROSIS
     Route: 048

REACTIONS (4)
  - LEUKAEMIA [None]
  - MALAISE [None]
  - LIVER DISORDER [None]
  - RASH [None]
